FAERS Safety Report 15469358 (Version 3)
Quarter: 2018Q4

REPORT INFORMATION
  Report Type: Report from Study
  Country: FR (occurrence: FR)
  Receive Date: 20181005
  Receipt Date: 20181102
  Transmission Date: 20190205
  Serious: Yes (Hospitalization, Other)
  Sender: FDA-Public Use
  Company Number: FR-JAZZ-2018-FR-014625

PATIENT

DRUGS (3)
  1. DEFITELIO [Suspect]
     Active Substance: DEFIBROTIDE SODIUM
     Dosage: 24.08 MG/KG, QD
     Dates: start: 20170823, end: 2017
  2. DEFITELIO [Suspect]
     Active Substance: DEFIBROTIDE SODIUM
     Dosage: 23.53 MG/KG, QD
     Dates: start: 2017, end: 20170911
  3. DEFITELIO [Suspect]
     Active Substance: DEFIBROTIDE SODIUM
     Indication: PROPHYLAXIS
     Dosage: 24.08 MG/KG, QD
     Dates: start: 20170810, end: 20170823

REACTIONS (10)
  - Mucosal inflammation [Unknown]
  - Dehydration [Unknown]
  - Venoocclusive disease [Recovered/Resolved]
  - Gastrointestinal motility disorder [Unknown]
  - Diarrhoea [Unknown]
  - Lung disorder [Unknown]
  - Gastrostomy [Unknown]
  - Graft versus host disease in lung [Unknown]
  - Klebsiella infection [Unknown]
  - Vomiting [Unknown]

NARRATIVE: CASE EVENT DATE: 20170814
